FAERS Safety Report 4918694-0 (Version None)
Quarter: 2006Q1

REPORT INFORMATION
  Report Type: 
  Country: None (occurrence: None)
  Receive Date: 20060221
  Receipt Date: 20060221
  Transmission Date: 20060701
  Serious: No
  Sender: FDA-Public Use
  Company Number: None

PATIENT
  Sex: Female
  Weight: 43.3185 kg

DRUGS (4)
  1. OXYCONTIN [Suspect]
     Indication: ABDOMINAL PAIN
     Dosage: 40 MG Q8HR PO; 10 MG Q8HR PO
     Route: 048
     Dates: start: 20060101
  2. OXYCONTIN [Suspect]
     Indication: ASCITES
     Dosage: 40 MG Q8HR PO; 10 MG Q8HR PO
     Route: 048
     Dates: start: 20060101
  3. OXYCONTIN [Suspect]
     Indication: PANCREATITIS CHRONIC
     Dosage: 40 MG Q8HR PO; 10 MG Q8HR PO
     Route: 048
     Dates: start: 20060101
  4. OXYCONTIN [Suspect]
     Indication: BREAKTHROUGH PAIN
     Dosage: 5 MG 1 Q 3-4 HR PRN
     Route: 048

REACTIONS (2)
  - INADEQUATE ANALGESIA [None]
  - PHARMACEUTICAL PRODUCT COMPLAINT [None]
